FAERS Safety Report 23785316 (Version 2)
Quarter: 2024Q2

REPORT INFORMATION
  Report Type: Spontaneous
  Country: US (occurrence: US)
  Receive Date: 20240425
  Receipt Date: 20240502
  Transmission Date: 20240716
  Serious: No
  Sender: FDA-Public Use
  Company Number: US-ABBVIE-5734646

PATIENT
  Sex: Female

DRUGS (4)
  1. BOTOX COSMETIC [Suspect]
     Active Substance: ONABOTULINUMTOXINA
     Indication: Skin wrinkling
     Dosage: TIME INTERVAL: AS NECESSARY: 60 OR 80 UNITS
     Route: 065
     Dates: start: 2023
  2. BOTOX COSMETIC [Suspect]
     Active Substance: ONABOTULINUMTOXINA
     Indication: Skin wrinkling
     Dosage: TIME INTERVAL: AS NECESSARY: 4 UNITS
     Route: 065
  3. BOTOX COSMETIC [Suspect]
     Active Substance: ONABOTULINUMTOXINA
     Indication: Skin wrinkling
     Dosage: TIME INTERVAL: AS NECESSARY: SMALLER DOSE 40 UNITS
     Route: 065
  4. BOTOX COSMETIC [Suspect]
     Active Substance: ONABOTULINUMTOXINA
     Indication: Skin wrinkling
     Dosage: TIME INTERVAL: AS NECESSARY: 6 UNITS
     Route: 065

REACTIONS (17)
  - Drug ineffective [Unknown]
  - Dystonia [Recovered/Resolved]
  - Asthenia [Recovered/Resolved]
  - Muscle spasticity [Recovered/Resolved]
  - Periorbital swelling [Recovered/Resolved]
  - Dystonia [Recovered/Resolved]
  - Muscle spasticity [Recovered/Resolved]
  - Asthenia [Recovered/Resolved]
  - Periorbital swelling [Recovered/Resolved]
  - Periorbital swelling [Recovered/Resolved]
  - Asthenia [Recovered/Resolved]
  - Dystonia [Recovered/Resolved]
  - Muscle spasticity [Recovered/Resolved]
  - Periorbital swelling [Unknown]
  - Asthenia [Unknown]
  - Dystonia [Unknown]
  - Muscle spasticity [Unknown]
